FAERS Safety Report 19970655 (Version 7)
Quarter: 2021Q4

REPORT INFORMATION
  Report Type: Report from Study
  Country: JP (occurrence: None)
  Receive Date: 20211019
  Receipt Date: 20211214
  Transmission Date: 20220303
  Serious: Yes (Hospitalization)
  Sender: FDA-Public Use
  Company Number: JP-ROCHE-2909701

PATIENT
  Age: 69 Year
  Sex: Female
  Weight: 51.6 kg

DRUGS (18)
  1. ATEZOLIZUMAB [Suspect]
     Active Substance: ATEZOLIZUMAB
     Indication: Hepatocellular carcinoma
     Dosage: ON 27/AUG/2021, SHE RECEIVED LAST DOSE OF ATEZOLIZUMAB 1200 MG PRIOR TO THE EVENT.
     Route: 041
     Dates: start: 20210827
  2. BEVACIZUMAB [Suspect]
     Active Substance: BEVACIZUMAB
     Indication: Hepatocellular carcinoma
     Dosage: ON 27/AUG/2021, SHE RECEIVED MOST RECENT DOSE OF BEVACIZUMAB 769 PRIOR TO THE ADVERSE EVENT.
     Route: 042
     Dates: start: 20210827
  3. OLMESARTAN MEDOXOMIL [Concomitant]
     Active Substance: OLMESARTAN MEDOXOMIL
     Indication: Hypertension
  4. MIDAZOLAM [Concomitant]
     Active Substance: MIDAZOLAM
     Indication: Epilepsy
     Dates: start: 202109
  5. AMLODIPINE [Concomitant]
     Active Substance: AMLODIPINE BESYLATE
     Indication: Hypertension
  6. LANSOPRAZOLE [Concomitant]
     Active Substance: LANSOPRAZOLE
     Indication: Gastric ulcer
     Dates: start: 202109
  7. NEXIUM [Concomitant]
     Active Substance: ESOMEPRAZOLE MAGNESIUM
     Indication: Gastric ulcer
     Dates: start: 202109
  8. FAMOTIDINE [Concomitant]
     Active Substance: FAMOTIDINE
     Indication: Gastric ulcer
     Dates: start: 202109
  9. MAGNESIUM OXIDE [Concomitant]
     Active Substance: MAGNESIUM OXIDE
     Indication: Constipation
     Dates: start: 202109
  10. SODIUM CHLORIDE [Concomitant]
     Active Substance: SODIUM CHLORIDE
     Indication: Dehydration
     Dates: start: 202109
  11. CALONAL [Concomitant]
     Active Substance: ACETAMINOPHEN
  12. MUCOPHYLLINE [Concomitant]
     Indication: Productive cough
     Dates: start: 202109
  13. VITAMEDIN (JAPAN) [Concomitant]
     Indication: Vitamin supplementation
     Dates: start: 202109
  14. PANTOTHENIC ACID [Concomitant]
     Active Substance: PANTOTHENIC ACID
     Dates: start: 202109
  15. CALCIUM CHLORIDE\MAGNESIUM CHLORIDE\POTASSIUM CHLORIDE\SODIUM ACETATE\ [Concomitant]
     Active Substance: CALCIUM CHLORIDE\MAGNESIUM CHLORIDE\POTASSIUM CHLORIDE\SODIUM ACETATE\SODIUM CHLORIDE
     Indication: Fluid replacement
     Dates: start: 202109
  16. CEFTRIAXONE SODIUM [Concomitant]
     Active Substance: CEFTRIAXONE SODIUM
     Indication: Infection
     Dates: start: 202109
  17. NICARDIPINE HYDROCHLORIDE [Concomitant]
     Active Substance: NICARDIPINE HYDROCHLORIDE
     Indication: Hypertension
  18. CALONAL [Concomitant]
     Active Substance: ACETAMINOPHEN
     Indication: Epilepsy

REACTIONS (1)
  - Epilepsy [Recovered/Resolved]

NARRATIVE: CASE EVENT DATE: 20210908
